FAERS Safety Report 4518921-8 (Version None)
Quarter: 2004Q4

REPORT INFORMATION
  Report Type: 
  Country: None (occurrence: None)
  Receive Date: 20041201
  Receipt Date: 20041115
  Transmission Date: 20050328
  Serious: Yes (Other)
  Sender: FDA-Public Use
  Company Number: DSA_25436_2004

PATIENT
  Age: 41 Year
  Sex: Female

DRUGS (8)
  1. TEMESTA [Suspect]
     Indication: PSYCHOTIC DISORDER
     Dosage: 1 MG Q DAY PO
     Route: 048
     Dates: start: 20020816, end: 20020816
  2. PRAZINE [Suspect]
     Indication: DEPRESSION
     Dosage: 50 MG Q DAY PO
     Route: 048
     Dates: start: 20020816, end: 20020816
  3. DEROXAT [Suspect]
     Indication: DEPRESSION
     Dosage: 20 MG Q DAY PO
     Route: 048
     Dates: start: 20010816
  4. SEROQUEL [Suspect]
     Indication: PSYCHOTIC DISORDER
     Dosage: 300 MG Q DAY PO
     Route: 048
     Dates: start: 20020816, end: 20020816
  5. SEROQUEL [Suspect]
     Indication: PSYCHOTIC DISORDER
     Dosage: 150 MG Q DAY PO
     Route: 048
     Dates: start: 20020816, end: 20020816
  6. SEROQUEL [Suspect]
     Indication: PSYCHOTIC DISORDER
     Dosage: 150 MG  BID PO
     Route: 048
     Dates: start: 20020816, end: 20020819
  7. SEROQUEL [Suspect]
     Indication: PSYCHOTIC DISORDER
     Dosage: 200 MG BID PO
     Route: 048
     Dates: start: 20040820
  8. SEROQUEL [Suspect]
     Indication: PSYCHOTIC DISORDER
     Dosage: 600 MG Q DAY PO
     Route: 048
     Dates: start: 20010822, end: 20020816

REACTIONS (6)
  - APNOEA [None]
  - DEPRESSED LEVEL OF CONSCIOUSNESS [None]
  - DRUG INTERACTION [None]
  - EXTENSOR PLANTAR RESPONSE [None]
  - SOMNOLENCE [None]
  - TACHYCARDIA [None]
